FAERS Safety Report 16617060 (Version 1)
Quarter: 2019Q3

REPORT INFORMATION
  Report Type: Spontaneous
  Country: US (occurrence: US)
  Receive Date: 20190723
  Receipt Date: 20190723
  Transmission Date: 20191004
  Serious: No
  Sender: FDA-Public Use
  Company Number: US-TEVA-2019-US-1080279

PATIENT
  Age: 81 Year
  Sex: Female

DRUGS (2)
  1. BUSPIRONE [Concomitant]
     Active Substance: BUSPIRONE HYDROCHLORIDE
     Indication: ANXIETY
  2. CARTIA XT [Suspect]
     Active Substance: DILTIAZEM HYDROCHLORIDE
     Indication: SUPRAVENTRICULAR TACHYCARDIA
     Dosage: 240 MG IN THE MORNING
     Dates: start: 2011

REACTIONS (4)
  - Fatigue [Unknown]
  - Blood pressure decreased [Unknown]
  - Somnolence [Unknown]
  - Extra dose administered [Unknown]
